FAERS Safety Report 7876814-2 (Version None)
Quarter: 2011Q4

REPORT INFORMATION
  Report Type: 
  Country: None (occurrence: None)
  Receive Date: 20111031
  Receipt Date: 20111018
  Transmission Date: 20120403
  Serious: Yes (Hospitalization, Other)
  Sender: FDA-Public Use
  Company Number: PHHY2011AT84542

PATIENT
  Age: 78 Year
  Sex: Female
  Weight: 74 kg

DRUGS (21)
  1. NOVALGIN [Concomitant]
     Dosage: 20-20-20
  2. DAFLON [Concomitant]
     Dosage: 500 MG, BID
  3. ZOLEDRONOC ACID [Suspect]
     Indication: OSTEOPOROSIS
     Dosage: 5 MG\100ML ONCE YEARLY
     Route: 042
     Dates: start: 20110525
  4. ENALAPRIL/HCT [Concomitant]
     Dosage: ENALAPRIL 20 MG / HCT 12.5 MG
     Dates: end: 20110609
  5. UROSIN [Concomitant]
     Dosage: 100 MG, QD
  6. MEXALEN [Concomitant]
     Dosage: 500 MG, TID
  7. FLOXEL [Concomitant]
     Dosage: 1 DF, TID
  8. CEREBOKAN [Concomitant]
     Dosage: 80 MG, BID
  9. VITAMIN D [Concomitant]
     Dosage: 1 DF, BID
  10. ANTIBIOPHILUS [Concomitant]
     Dosage: 1 DF, TID
  11. TORSEMIDE [Concomitant]
     Dosage: 10 MG, QD
  12. PANTOPRAZOLE [Concomitant]
     Dosage: 20 MG, QD
  13. REPARIL [Concomitant]
     Dosage: 40 MG, TID
  14. OCULOTECT [Concomitant]
     Dosage: 1 DF, TID
  15. ZOLEDRONOC ACID [Suspect]
     Dosage: 5 MG\100ML ONCE YEARLY
     Route: 042
     Dates: start: 20110621
  16. PARKEMED [Concomitant]
     Indication: RHEUMATOID ARTHRITIS
     Dosage: 500 MG, QW2
     Dates: start: 20020101
  17. HYDROMORPHONE HCL [Concomitant]
     Dosage: 4 MG, BID
  18. ANALGESICS [Concomitant]
     Dosage: UNK UKN, UNK
  19. ACE INHIBITORS [Concomitant]
     Dosage: UNK UKN, UNK
  20. PARKEMED [Concomitant]
     Dosage: 750 MG, QD
     Dates: end: 20110630
  21. LASIX [Concomitant]
     Dosage: 40 MG, UNK
     Dates: end: 20110609

REACTIONS (33)
  - ANURIA [None]
  - CHOLELITHIASIS [None]
  - BLOOD CREATININE INCREASED [None]
  - LYMPHOEDEMA [None]
  - GLYCOSYLATED HAEMOGLOBIN INCREASED [None]
  - HEPATIC STEATOSIS [None]
  - RENAL FAILURE [None]
  - BLOOD URIC ACID INCREASED [None]
  - DYSPNOEA [None]
  - DIABETES MELLITUS MALNUTRITION-RELATED [None]
  - PNEUMONIA [None]
  - BLOOD GLUCOSE INCREASED [None]
  - CARDIAC FAILURE [None]
  - ACTINIC KERATOSIS [None]
  - WEIGHT INCREASED [None]
  - RENAL IMPAIRMENT [None]
  - INAPPROPRIATE SCHEDULE OF DRUG ADMINISTRATION [None]
  - IRON DEFICIENCY ANAEMIA [None]
  - OBESITY [None]
  - BODY MASS INDEX INCREASED [None]
  - DEPRESSION [None]
  - GAIT DISTURBANCE [None]
  - ERYTHEMA [None]
  - HYPERTENSION [None]
  - POLYNEUROPATHY [None]
  - C-REACTIVE PROTEIN INCREASED [None]
  - OEDEMA PERIPHERAL [None]
  - FOOT DEFORMITY [None]
  - METABOLIC SYNDROME [None]
  - GLOMERULAR FILTRATION RATE DECREASED [None]
  - GOUTY ARTHRITIS [None]
  - RHEUMATOID ARTHRITIS [None]
  - PAIN IN EXTREMITY [None]
